FAERS Safety Report 13113318 (Version 1)
Quarter: 2017Q1

REPORT INFORMATION
  Report Type: Spontaneous
  Country: CN (occurrence: CN)
  Receive Date: 20170113
  Receipt Date: 20170113
  Transmission Date: 20170428
  Serious: Yes (Other)
  Sender: FDA-Public Use
  Company Number: CN-PFIZER INC-2017009660

PATIENT
  Age: 58 Year
  Sex: Male
  Weight: 62 kg

DRUGS (1)
  1. CYTOSAR [Suspect]
     Active Substance: CYTARABINE
     Indication: LYMPHOMA
     Dosage: 3 G, 1X/DAY
     Route: 041
     Dates: start: 20161111, end: 20161112

REACTIONS (3)
  - Tachycardia [Recovered/Resolved]
  - Vomiting [Recovered/Resolved]
  - Nausea [Recovered/Resolved]

NARRATIVE: CASE EVENT DATE: 20161111
